FAERS Safety Report 6727078-4 (Version None)
Quarter: 2010Q2

REPORT INFORMATION
  Report Type: 
  Country: None (occurrence: None)
  Receive Date: 20100517
  Receipt Date: 20100507
  Transmission Date: 20101027
  Serious: Yes (Hospitalization)
  Sender: FDA-Public Use
  Company Number: US-ASTRAZENECA-2010SE20924

PATIENT
  Age: 47 Year
  Sex: Female
  Weight: 59 kg

DRUGS (15)
  1. SEROQUEL [Suspect]
     Indication: MAJOR DEPRESSION
     Route: 048
     Dates: start: 20020101, end: 20090101
  2. SEROQUEL [Suspect]
     Indication: ATTENTION DEFICIT/HYPERACTIVITY DISORDER
     Route: 048
     Dates: start: 20020101, end: 20090101
  3. SEROQUEL [Suspect]
     Indication: ANXIETY
     Route: 048
     Dates: start: 20020101, end: 20090101
  4. SEROQUEL [Suspect]
     Route: 048
     Dates: start: 20100101
  5. SEROQUEL [Suspect]
     Route: 048
     Dates: start: 20100101
  6. SEROQUEL [Suspect]
     Route: 048
     Dates: start: 20100101
  7. SEROQUEL [Suspect]
     Route: 048
     Dates: start: 20100101
  8. SEROQUEL [Suspect]
     Route: 048
     Dates: start: 20100101
  9. SEROQUEL [Suspect]
     Route: 048
     Dates: start: 20100101
  10. PROZAC [Concomitant]
  11. RITALIN [Concomitant]
  12. STRATTERA [Concomitant]
     Dates: start: 20100401
  13. ATIVAN [Concomitant]
     Dates: start: 20100401
  14. GABAPENTIN [Concomitant]
     Dates: end: 20100401
  15. WELLBUTRIN [Concomitant]
     Dates: end: 20100401

REACTIONS (5)
  - DIZZINESS [None]
  - DRUG DOSE OMISSION [None]
  - NERVOUS SYSTEM DISORDER [None]
  - SOMNOLENCE [None]
  - WEIGHT INCREASED [None]
